FAERS Safety Report 8358648-8 (Version None)
Quarter: 2012Q2

REPORT INFORMATION
  Report Type: 
  Country: None (occurrence: None)
  Receive Date: 20120514
  Receipt Date: 20120510
  Transmission Date: 20120825
  Serious: Yes (Hospitalization, Other)
  Sender: FDA-Public Use
  Company Number: GB-ROCHE-1039236

PATIENT
  Sex: Female
  Weight: 91.7 kg

DRUGS (6)
  1. CHLORAMBUCIL [Suspect]
     Dosage: DAILY FOR 7 DAYS
     Route: 048
  2. PREDNISOLONE [Concomitant]
     Dates: start: 20100101
  3. ASPIRIN [Concomitant]
     Dates: start: 20120218
  4. METFORMIN HCL [Concomitant]
     Dates: start: 20100101
  5. MABTHERA [Suspect]
     Indication: CHRONIC LYMPHOCYTIC LEUKAEMIA
     Dosage: DATE OF LAST DOSE PRIOR TO EVENT: 16/JAN/2012
     Route: 042
     Dates: start: 20111121
  6. CHLORAMBUCIL [Suspect]
     Indication: CHRONIC LYMPHOCYTIC LEUKAEMIA
     Dosage: 20MG/DAY FOR 7 DAYS EACH CYCLE, DATE OF LAST DOSE PRIOR TO EVENT: 22/JAN/2012
     Route: 048
     Dates: start: 20111121

REACTIONS (4)
  - URINARY TRACT INFECTION [None]
  - DEHYDRATION [None]
  - RENAL FAILURE ACUTE [None]
  - RENAL IMPAIRMENT [None]
